FAERS Safety Report 10025766 (Version 1)
Quarter: 2014Q1

REPORT INFORMATION
  Report Type: Spontaneous
  Country: IT (occurrence: None)
  Receive Date: 20140314
  Receipt Date: 20140314
  Transmission Date: 20141002
  Serious: Yes (Hospitalization)
  Sender: FDA-Public Use
  Company Number: FK201400797

PATIENT
  Age: 58 Year
  Sex: Male

DRUGS (17)
  1. LEVOFLOXACIN [Suspect]
     Indication: PYREXIA
     Route: 041
     Dates: start: 20131119, end: 20131124
  2. METRONIDAZOL [Suspect]
     Indication: CHOLECYSTITIS ACUTE
     Dates: start: 20131119, end: 20131124
  3. PIP/TAZ [Suspect]
     Indication: CHOLECYSTITIS ACUTE
     Route: 042
     Dates: start: 20131119, end: 20131124
  4. ALLOPURINOLO [Suspect]
     Indication: HYPERURICAEMIA
     Route: 048
     Dates: start: 20131120, end: 20131124
  5. CEFTRIAXONE [Suspect]
     Indication: PYREXIA
     Route: 042
     Dates: start: 20131119, end: 20131124
  6. URSODEOXYCHOLIC ACID (URSODEOXYCHOLIC ACID) UNKNOWN) [Concomitant]
  7. AMLODIPINE (AMLODIPINE) [Concomitant]
  8. BROMAZEPAM (BROMAZEPAM) [Concomitant]
  9. FUROSEMIDE (FUROSEMIDE) [Concomitant]
  10. NEBIVOLOL (NEBIVOLOL) (NEBIVOLOL) [Concomitant]
  11. OMEPRAZOLE (OMEPRAZOLE) [Concomitant]
  12. ATARAX (HYDROXYZINE) [Concomitant]
  13. TAREG (VALSARTAN) [Concomitant]
  14. ARANESP (DARBEPOETIN ALFA) [Concomitant]
  15. CLEXANE (ENOXAPARIN SODIUM) [Concomitant]
  16. HUMALOG (INSULIN LISPRO) [Concomitant]
  17. LANTUS (INSULIN LISPRO) [Concomitant]

REACTIONS (1)
  - Pemphigoid [None]
